FAERS Safety Report 9639318 (Version 3)
Quarter: 2013Q4

REPORT INFORMATION
  Report Type: Spontaneous
  Country: US (occurrence: US)
  Receive Date: 20131022
  Receipt Date: 20131106
  Transmission Date: 20140711
  Serious: Yes (Other)
  Sender: FDA-Public Use
  Company Number: ALCN2013US005234

PATIENT
  Sex: Female
  Weight: 76.19 kg

DRUGS (2)
  1. BRIMONIDINE [Suspect]
     Indication: GLAUCOMA
     Dosage: 1 DF, BID
     Route: 047
     Dates: start: 20110204, end: 20130920
  2. XALATAN [Concomitant]
     Dosage: 1 DF, UNK
     Route: 047
     Dates: start: 2000

REACTIONS (5)
  - Symblepharon [Not Recovered/Not Resolved]
  - Conjunctival scar [Not Recovered/Not Resolved]
  - Dry eye [Not Recovered/Not Resolved]
  - Eye irritation [Not Recovered/Not Resolved]
  - Ocular hyperaemia [Not Recovered/Not Resolved]
